FAERS Safety Report 18914419 (Version 3)
Quarter: 2021Q2

REPORT INFORMATION
  Report Type: Spontaneous
  Country: AU (occurrence: AU)
  Receive Date: 20210218
  Receipt Date: 20210521
  Transmission Date: 20210717
  Serious: Yes (Hospitalization)
  Sender: FDA-Public Use
  Company Number: AU-TASMAN PHARMA, INC.-2021TSM00009

PATIENT
  Sex: Female

DRUGS (40)
  1. CLOZAPINE. [Suspect]
     Active Substance: CLOZAPINE
     Dosage: 25 MG
     Dates: start: 20170221, end: 20170222
  2. CLOZAPINE. [Suspect]
     Active Substance: CLOZAPINE
     Dosage: 200 MG
     Dates: start: 20201110, end: 20201115
  3. CLOZAPINE. [Suspect]
     Active Substance: CLOZAPINE
     Dosage: 400 MG
     Dates: start: 20201201, end: 20201214
  4. CLOZAPINE. [Suspect]
     Active Substance: CLOZAPINE
     Dosage: 600 MG
     Dates: start: 20110902, end: 20120506
  5. CLOZAPINE. [Suspect]
     Active Substance: CLOZAPINE
     Dosage: 225 MG, 1X/DAY AT NIGHT
     Dates: start: 20151117, end: 20170128
  6. CLOZAPINE. [Suspect]
     Active Substance: CLOZAPINE
     Dosage: 225 MG
     Dates: start: 20150210, end: 20150311
  7. CLOZAPINE. [Suspect]
     Active Substance: CLOZAPINE
     Dosage: 125 MG
     Dates: start: 20170302, end: 20170305
  8. CLOZAPINE. [Suspect]
     Active Substance: CLOZAPINE
     Dosage: 250 MG
     Dates: start: 20200914, end: 20200918
  9. CLOZAPINE. [Suspect]
     Active Substance: CLOZAPINE
     Dosage: 300 MG
     Dates: start: 20201116, end: 20201130
  10. CLOZAPINE. [Suspect]
     Active Substance: CLOZAPINE
     Dosage: 450 MG
     Dates: start: 20201215, end: 20201228
  11. CLOZAPINE. [Suspect]
     Active Substance: CLOZAPINE
     Dosage: 550 MG
     Dates: start: 20120507, end: 20130313
  12. CLOZAPINE. [Suspect]
     Active Substance: CLOZAPINE
     Dosage: 225 MG
     Dates: start: 20130925, end: 20150209
  13. CLOZAPINE. [Suspect]
     Active Substance: CLOZAPINE
     Dosage: 12.5 MG
     Dates: start: 20170220, end: 20170220
  14. CLOZAPINE. [Suspect]
     Active Substance: CLOZAPINE
     Dosage: 50 MG
     Dates: start: 20170223, end: 20170301
  15. CLOZAPINE. [Suspect]
     Active Substance: CLOZAPINE
     Dosage: 175 MG
     Dates: start: 20170306, end: 20170309
  16. CLOZAPINE. [Suspect]
     Active Substance: CLOZAPINE
     Dosage: 550 MG
     Dates: start: 20201229, end: 20210111
  17. CLOZAPINE. [Suspect]
     Active Substance: CLOZAPINE
     Dosage: 100 MG
     Dates: start: 20210413, end: 20210420
  18. CLOZAPINE. [Suspect]
     Active Substance: CLOZAPINE
     Dosage: 600 MG
     Dates: start: 20110414, end: 20110505
  19. CLOZAPINE. [Suspect]
     Active Substance: CLOZAPINE
     Dosage: 300 MG
     Dates: start: 20130314, end: 20130924
  20. CLOZAPINE. [Suspect]
     Active Substance: CLOZAPINE
     Dosage: 225 MG, 1X/DAY AT NIGHT
     Dates: start: 20170203, end: 20170210
  21. CLOZAPINE. [Suspect]
     Active Substance: CLOZAPINE
     Dosage: 250 MG
     Dates: start: 20180921, end: 20200913
  22. CLOZAPINE. [Suspect]
     Active Substance: CLOZAPINE
     Dosage: 225 MG
     Dates: start: 20210427, end: 20210505
  23. CLOZAPINE. [Suspect]
     Active Substance: CLOZAPINE
     Dosage: 550 MG
     Dates: start: 20100115, end: 20110413
  24. CLOZAPINE. [Suspect]
     Active Substance: CLOZAPINE
     Dosage: 550 MG
     Dates: start: 20091216, end: 20100114
  25. CLOZAPINE. [Suspect]
     Active Substance: CLOZAPINE
     Dosage: 175 MG
     Dates: start: 20201102, end: 20201109
  26. CLOZAPINE. [Suspect]
     Active Substance: CLOZAPINE
     Dosage: 400 MG
     Dates: start: 20081218, end: 20090118
  27. CLOZAPINE. [Suspect]
     Active Substance: CLOZAPINE
     Dosage: 550 MG
     Dates: start: 20090119, end: 20090506
  28. CLOZAPINE. [Suspect]
     Active Substance: CLOZAPINE
     Dosage: 650 MG
     Dates: start: 20210125, end: 20210201
  29. CLOZAPINE. [Suspect]
     Active Substance: CLOZAPINE
     Dosage: 250 MG
     Dates: start: 20170922, end: 20171214
  30. CLOZAPINE. [Suspect]
     Active Substance: CLOZAPINE
     Dosage: 225 MG
     Dates: start: 20210506
  31. CLOZAPINE. [Suspect]
     Active Substance: CLOZAPINE
     Dosage: 225 MG
     Dates: start: 20170211, end: 20170211
  32. CLOZAPINE. [Suspect]
     Active Substance: CLOZAPINE
     Dosage: 550 MG
     Dates: start: 20110506, end: 20110817
  33. CLOZAPINE. [Suspect]
     Active Substance: CLOZAPINE
     Dosage: 225 MG
     Dates: start: 20150312, end: 20151019
  34. CLOZAPINE. [Suspect]
     Active Substance: CLOZAPINE
     Dosage: 225 MG
     Dates: start: 20151020, end: 20151116
  35. CLOZAPINE. [Suspect]
     Active Substance: CLOZAPINE
     Dosage: 650 MG
     Dates: start: 20210112, end: 20210124
  36. CLOZAPINE. [Suspect]
     Active Substance: CLOZAPINE
     Dosage: 150 MG
     Dates: start: 20210421, end: 20210426
  37. CLOZAPINE. [Suspect]
     Active Substance: CLOZAPINE
     Dosage: 550 MG
     Dates: start: 20090507, end: 20091215
  38. CLOZAPINE. [Suspect]
     Active Substance: CLOZAPINE
     Dosage: 200 MG
     Dates: start: 20170310, end: 20170921
  39. CLOZAPINE. [Suspect]
     Active Substance: CLOZAPINE
     Dosage: 300 MG
     Dates: start: 20171215, end: 20180920
  40. CLOZAPINE. [Suspect]
     Active Substance: CLOZAPINE
     Dosage: 550 MG
     Dates: start: 20110818, end: 20110901

REACTIONS (7)
  - Ill-defined disorder [Unknown]
  - Wrong dose [Recovered/Resolved]
  - Therapeutic product effect incomplete [Recovered/Resolved]
  - Treatment noncompliance [Recovered/Resolved]
  - Toxicity to various agents [Unknown]
  - Neutropenia [Recovered/Resolved]
  - Unevaluable event [Unknown]

NARRATIVE: CASE EVENT DATE: 2017
